FAERS Safety Report 6180529-9 (Version None)
Quarter: 2009Q2

REPORT INFORMATION
  Report Type: 
  Country: None (occurrence: None)
  Receive Date: 20090506
  Receipt Date: 20090427
  Transmission Date: 20091009
  Serious: Yes (Other)
  Sender: FDA-Public Use
  Company Number: US-WYE-H09186209

PATIENT
  Sex: Female

DRUGS (3)
  1. PRISTIQ [Suspect]
     Indication: DEPRESSION
     Route: 064
     Dates: start: 20080901, end: 20090227
  2. LAMICTAL [Concomitant]
     Indication: CONVULSION
     Route: 064
     Dates: start: 20080821, end: 20090227
  3. VITAMINS NOS [Concomitant]
     Indication: PRENATAL CARE
     Route: 064
     Dates: start: 20080821, end: 20090227

REACTIONS (2)
  - MATERNAL DRUGS AFFECTING FOETUS [None]
  - PREMATURE BABY [None]
